FAERS Safety Report 21838252 (Version 2)
Quarter: 2023Q1

REPORT INFORMATION
  Report Type: Spontaneous
  Country: US (occurrence: US)
  Receive Date: 20230109
  Receipt Date: 20230113
  Transmission Date: 20230418
  Serious: Yes (Other)
  Sender: FDA-Public Use
  Company Number: US-PFIZER INC-202300005739

PATIENT
  Age: 67 Year
  Sex: Female

DRUGS (5)
  1. LORAZEPAM [Suspect]
     Active Substance: LORAZEPAM
     Indication: Movement disorder
     Dosage: 6 DF, DAILY
  2. LORAZEPAM [Suspect]
     Active Substance: LORAZEPAM
     Dosage: 5 DF, DAILY
  3. LORAZEPAM [Suspect]
     Active Substance: LORAZEPAM
     Dosage: 4 DF, DAILY
  4. LORAZEPAM [Suspect]
     Active Substance: LORAZEPAM
     Dosage: 3 DF, DAILY
  5. LORAZEPAM [Suspect]
     Active Substance: LORAZEPAM
     Dosage: 2 DF, DAILY

REACTIONS (2)
  - Seizure [Unknown]
  - Off label use [Unknown]
